FAERS Safety Report 9536371 (Version 1)
Quarter: 2013Q2

REPORT INFORMATION
  Report Type: Spontaneous
  Country: US (occurrence: None)
  Receive Date: 20130507
  Receipt Date: 20130507
  Transmission Date: 20140414
  Serious: Yes (Other)
  Sender: FDA-Public Use
  Company Number: PHEH2012US023816

PATIENT
  Sex: Female

DRUGS (1)
  1. AFINITOR (RAD) [Suspect]
     Indication: BREAST CANCER
     Dates: start: 20121008

REACTIONS (4)
  - Haemoglobin decreased [None]
  - Hypersomnia [None]
  - Stomatitis [None]
  - Fatigue [None]
